FAERS Safety Report 7170277-0 (Version None)
Quarter: 2010Q4

REPORT INFORMATION
  Report Type: 
  Country: None (occurrence: None)
  Receive Date: 20101217
  Receipt Date: 20101210
  Transmission Date: 20110411
  Serious: Yes (Hospitalization)
  Sender: FDA-Public Use
  Company Number: FR-PFIZER INC-2010168774

PATIENT
  Age: 32 Year
  Sex: Female

DRUGS (15)
  1. SOLU-MEDROL [Suspect]
     Dosage: 1 G, 1X/DAY
     Route: 042
     Dates: start: 20101028, end: 20101031
  2. ENDOXAN [Suspect]
     Dosage: 1 G, 1X/DAY
     Route: 042
     Dates: start: 20101104, end: 20101104
  3. STROMECTOL [Suspect]
     Dosage: 15 MG, 1X/DAY
     Route: 048
     Dates: start: 20101029, end: 20101030
  4. ONDANSETRON [Suspect]
     Dosage: 8 G, 1X/DAY
     Route: 042
     Dates: start: 20101104, end: 20101105
  5. STILNOX [Suspect]
     Dosage: 10 MG, 1X/DAY
     Route: 048
     Dates: end: 20101106
  6. PLAQUENIL [Concomitant]
  7. ALPRAZOLAM [Concomitant]
  8. CELLUVISC [Concomitant]
  9. BACTRIM [Concomitant]
  10. VALACICLOVIR [Concomitant]
  11. CRESTOR [Concomitant]
  12. CACIT D3 [Concomitant]
  13. DIFFU K [Concomitant]
  14. UROMITEXAN [Concomitant]
     Dosage: UNK
     Route: 048
     Dates: start: 20101104, end: 20101105
  15. UROMITEXAN [Concomitant]
     Dosage: UNK
     Route: 042
     Dates: start: 20101104, end: 20101105

REACTIONS (1)
  - CYTOLYTIC HEPATITIS [None]
